FAERS Safety Report 15943116 (Version 2)
Quarter: 2019Q2

REPORT INFORMATION
  Report Type: Spontaneous
  Country: US (occurrence: US)
  Receive Date: 20190210
  Receipt Date: 20190417
  Transmission Date: 20190711
  Serious: Yes (Other)
  Sender: FDA-Public Use
  Company Number: US-ASTRAZENECA-2018SF21065

PATIENT
  Age: 25140 Day
  Sex: Female

DRUGS (18)
  1. NEXIUM [Suspect]
     Active Substance: ESOMEPRAZOLE MAGNESIUM
     Route: 048
  2. PROTONIX [Suspect]
     Active Substance: PANTOPRAZOLE SODIUM
     Route: 065
     Dates: start: 201010, end: 201010
  3. HYDRALAZINE [Concomitant]
     Active Substance: HYDRALAZINE HYDROCHLORIDE
  4. BUMETANIDE. [Concomitant]
     Active Substance: BUMETANIDE
  5. PRILOSEC [Suspect]
     Active Substance: OMEPRAZOLE MAGNESIUM
     Route: 048
  6. PROTONIX [Suspect]
     Active Substance: PANTOPRAZOLE SODIUM
     Route: 065
     Dates: start: 20010101, end: 20070101
  7. AMLODIPINE [Concomitant]
     Active Substance: AMLODIPINE BESYLATE
  8. ASPIRIN. [Concomitant]
     Active Substance: ASPIRIN
  9. NEXIUM [Suspect]
     Active Substance: ESOMEPRAZOLE MAGNESIUM
     Route: 048
     Dates: start: 201010, end: 201010
  10. PREVACID [Suspect]
     Active Substance: LANSOPRAZOLE
     Route: 048
  11. CLONAZEPAM. [Concomitant]
     Active Substance: CLONAZEPAM
  12. NEXIUM 24HR [Suspect]
     Active Substance: ESOMEPRAZOLE MAGNESIUM
     Route: 048
  13. PRILOSEC OTC [Suspect]
     Active Substance: OMEPRAZOLE MAGNESIUM
     Route: 048
  14. PREVACID 24 HR [Suspect]
     Active Substance: LANSOPRAZOLE
     Route: 048
  15. PROTONIX [Suspect]
     Active Substance: PANTOPRAZOLE SODIUM
     Route: 065
     Dates: start: 20010220, end: 20070101
  16. CARVEDILOL. [Concomitant]
     Active Substance: CARVEDILOL
  17. NIFEDIPINE. [Concomitant]
     Active Substance: NIFEDIPINE
  18. FAMOTIDINE. [Concomitant]
     Active Substance: FAMOTIDINE

REACTIONS (4)
  - Chronic kidney disease [Recovered/Resolved]
  - Acute kidney injury [Recovered/Resolved]
  - Renal injury [Recovered/Resolved]
  - Nephrogenic anaemia [Recovered/Resolved]

NARRATIVE: CASE EVENT DATE: 20141227
